FAERS Safety Report 24362853 (Version 11)
Quarter: 2025Q1

REPORT INFORMATION
  Report Type: Report from Study
  Country: US (occurrence: US)
  Receive Date: 20240925
  Receipt Date: 20250127
  Transmission Date: 20250409
  Serious: Yes (Hospitalization, Other)
  Sender: JAZZ
  Company Number: US-JAZZ PHARMACEUTICALS-2024-US-013836

PATIENT
  Age: 49 Year
  Sex: Female

DRUGS (29)
  1. XYWAV [Suspect]
     Active Substance: CALCIUM OXYBATE\MAGNESIUM OXYBATE\POTASSIUM OXYBATE\SODIUM OXYBATE
     Indication: Narcolepsy
     Dosage: 1.5 GRAM, BID
     Route: 048
     Dates: start: 20240811, end: 20240821
  2. XYWAV [Suspect]
     Active Substance: CALCIUM OXYBATE\MAGNESIUM OXYBATE\POTASSIUM OXYBATE\SODIUM OXYBATE
     Indication: Cataplexy
     Dates: start: 20240916
  3. XYWAV [Suspect]
     Active Substance: CALCIUM OXYBATE\MAGNESIUM OXYBATE\POTASSIUM OXYBATE\SODIUM OXYBATE
     Indication: Somnolence
  4. XYWAV [Suspect]
     Active Substance: CALCIUM OXYBATE\MAGNESIUM OXYBATE\POTASSIUM OXYBATE\SODIUM OXYBATE
  5. XYWAV [Suspect]
     Active Substance: CALCIUM OXYBATE\MAGNESIUM OXYBATE\POTASSIUM OXYBATE\SODIUM OXYBATE
  6. XYWAV [Suspect]
     Active Substance: CALCIUM OXYBATE\MAGNESIUM OXYBATE\POTASSIUM OXYBATE\SODIUM OXYBATE
  7. XYWAV [Suspect]
     Active Substance: CALCIUM OXYBATE\MAGNESIUM OXYBATE\POTASSIUM OXYBATE\SODIUM OXYBATE
  8. WAKIX [Suspect]
     Active Substance: PITOLISANT HYDROCHLORIDE
     Indication: Product used for unknown indication
  9. COMBIPATCH [Suspect]
     Active Substance: ESTRADIOL\NORETHINDRONE ACETATE
     Indication: Product used for unknown indication
  10. MODAFINIL [Suspect]
     Active Substance: MODAFINIL
     Indication: Chest pain
  11. CELEBREX [Suspect]
     Active Substance: CELECOXIB
     Indication: Pain
  12. TIROSINT [Concomitant]
     Active Substance: LEVOTHYROXINE SODIUM
     Indication: Product used for unknown indication
     Dates: start: 20171023
  13. CABERGOLINE [Concomitant]
     Active Substance: CABERGOLINE
     Indication: Product used for unknown indication
     Dates: start: 20230609
  14. OMEPRAZOLE [Concomitant]
     Active Substance: OMEPRAZOLE
     Indication: Product used for unknown indication
     Dates: start: 20240312
  15. ARMODAFINIL [Concomitant]
     Active Substance: ARMODAFINIL
     Indication: Product used for unknown indication
     Dates: start: 20240701
  16. TUMS [Concomitant]
     Active Substance: CALCIUM CARBONATE
     Indication: Product used for unknown indication
     Dates: start: 20240312
  17. NUVIGIL [Concomitant]
     Active Substance: ARMODAFINIL
     Indication: Product used for unknown indication
  18. FENTANYL [Concomitant]
     Active Substance: FENTANYL
     Indication: Product used for unknown indication
  19. BAUSCH + LOMB SENSITIVE EYES [Concomitant]
     Indication: Product used for unknown indication
  20. NURTEC ODT [Concomitant]
     Active Substance: RIMEGEPANT SULFATE
     Indication: Migraine
  21. COSMETICS [Concomitant]
     Active Substance: COSMETICS
     Indication: Product used for unknown indication
  22. CHLORSEP [Concomitant]
     Indication: Product used for unknown indication
  23. RESTASIS [Concomitant]
     Active Substance: CYCLOSPORINE
     Indication: Product used for unknown indication
  24. PANTOPRAZOLE [Concomitant]
     Active Substance: PANTOPRAZOLE
     Indication: Migraine
  25. METOCLOPRAMIDE [Concomitant]
     Active Substance: METOCLOPRAMIDE
     Indication: Product used for unknown indication
  26. TACROLIMUS [Concomitant]
     Active Substance: TACROLIMUS
     Indication: Product used for unknown indication
  27. TIZANIDINE [Concomitant]
     Active Substance: TIZANIDINE
     Indication: Product used for unknown indication
  28. TIZANIDINE [Concomitant]
     Active Substance: TIZANIDINE
  29. LASIX [Concomitant]
     Active Substance: FUROSEMIDE
     Indication: Product used for unknown indication
     Dates: start: 20241125

REACTIONS (53)
  - Musculoskeletal discomfort [Unknown]
  - Cardiac failure congestive [Unknown]
  - Surgery [Unknown]
  - Autoimmune thyroiditis [Unknown]
  - Polyarthritis [Unknown]
  - Bradycardia [Unknown]
  - Tachycardia [Unknown]
  - Atrioventricular node dysfunction [Unknown]
  - Muscle spasms [Unknown]
  - Contusion [Unknown]
  - Oedema [Unknown]
  - Hyperhidrosis [Unknown]
  - Chest pain [Recovering/Resolving]
  - Vomiting [Recovered/Resolved]
  - Abdominal pain upper [Unknown]
  - Tongue geographic [Recovered/Resolved]
  - Nausea [Unknown]
  - Hepatic steatosis [Unknown]
  - Eczema eyelids [Unknown]
  - Chemical burn [Unknown]
  - Rhinitis [Unknown]
  - Dysuria [Unknown]
  - Fungal infection [Unknown]
  - Sacralisation [Unknown]
  - Folate deficiency [Unknown]
  - Weight increased [Unknown]
  - Pruritus [Recovered/Resolved]
  - Ophthalmic migraine [Unknown]
  - Fall [Unknown]
  - Arthralgia [Unknown]
  - Cyst [Unknown]
  - Joint effusion [Unknown]
  - Helicobacter gastritis [Unknown]
  - Breast pain [Unknown]
  - Renal cyst [Unknown]
  - Hot flush [Unknown]
  - Stress [Unknown]
  - Malabsorption [Unknown]
  - Abdominal distension [Unknown]
  - Heart rate abnormal [Unknown]
  - Headache [Unknown]
  - Hypertension [Unknown]
  - Oxygen saturation decreased [Unknown]
  - Emergency care [Unknown]
  - Nausea [Unknown]
  - Chest discomfort [Unknown]
  - Dyspnoea [Unknown]
  - Gastrointestinal disorder [Unknown]
  - Treatment noncompliance [Unknown]
  - Product storage error [Unknown]
  - Product administration interrupted [Unknown]
  - Prescribed underdose [Unknown]
  - Product dose omission issue [Unknown]

NARRATIVE: CASE EVENT DATE: 20240101
